FAERS Safety Report 9314335 (Version 1)
Quarter: 2013Q2

REPORT INFORMATION
  Report Type: Spontaneous
  Country: US (occurrence: None)
  Receive Date: 20130522
  Receipt Date: 20130522
  Transmission Date: 20140414
  Serious: Yes (Other)
  Sender: FDA-Public Use
  Company Number: 2013SA050058

PATIENT
  Sex: Female

DRUGS (1)
  1. CAPSAICIN [Suspect]

REACTIONS (2)
  - Blister [None]
  - Pain [None]
